FAERS Safety Report 9216715 (Version 1)
Quarter: 2013Q2

REPORT INFORMATION
  Report Type: Spontaneous
  Country: US (occurrence: US)
  Receive Date: 20130408
  Receipt Date: 20130408
  Transmission Date: 20140414
  Serious: No
  Sender: FDA-Public Use
  Company Number: US-PFIZER INC-2013101984

PATIENT
  Age: 46 Year
  Sex: Male
  Weight: 86.17 kg

DRUGS (1)
  1. ADVIL [Suspect]
     Indication: HEADACHE
     Dosage: 400 MG, SINGLE (2 TABLETS AT ONE TIME FROM A SINGLE PACKET)
     Route: 048
     Dates: start: 201302

REACTIONS (2)
  - Incorrect dose administered [Unknown]
  - Palpitations [Recovered/Resolved]
